FAERS Safety Report 9387320 (Version 4)
Quarter: 2013Q3

REPORT INFORMATION
  Report Type: Spontaneous
  Country: US (occurrence: US)
  Receive Date: 20130708
  Receipt Date: 20130910
  Transmission Date: 20140515
  Serious: Yes (Congenital Anomaly, Other)
  Sender: FDA-Public Use
  Company Number: US-JNJFOC-20130700591

PATIENT
  Sex: Male

DRUGS (10)
  1. TOPAMAX [Suspect]
     Indication: GENERALISED ANXIETY DISORDER
     Route: 064
  2. TOPAMAX [Suspect]
     Indication: GENERALISED ANXIETY DISORDER
     Dosage: 100 MG EVERY MORNING AND 100 MG EVERY EVENING
     Route: 064
     Dates: end: 200701
  3. TOPAMAX [Suspect]
     Indication: GENERALISED ANXIETY DISORDER
     Route: 064
     Dates: start: 20070222, end: 20070301
  4. TOPAMAX [Suspect]
     Indication: GENERALISED ANXIETY DISORDER
     Route: 064
     Dates: start: 20070214, end: 20070221
  5. TOPAMAX [Suspect]
     Indication: GENERALISED ANXIETY DISORDER
     Route: 064
     Dates: start: 20070206, end: 20070213
  6. TOPAMAX [Suspect]
     Indication: GENERALISED ANXIETY DISORDER
     Route: 064
     Dates: start: 20070129, end: 20070205
  7. WELLBUTRIN XL [Suspect]
     Indication: GENERALISED ANXIETY DISORDER
     Route: 064
  8. VALTREX [Suspect]
     Indication: EYE INFECTION
     Route: 064
  9. PRENATAL VITAMINS [Concomitant]
     Indication: PRENATAL CARE
     Route: 065
  10. CENTRUM MULTIVITAMINS [Concomitant]
     Indication: PRODUCT USED FOR UNKNOWN INDICATION
     Route: 064

REACTIONS (3)
  - Cleft lip and palate [Unknown]
  - Foetal exposure during pregnancy [Recovered/Resolved]
  - Emotional disorder [Unknown]
